FAERS Safety Report 6766251-6 (Version None)
Quarter: 2010Q2

REPORT INFORMATION
  Report Type: 
  Country: None (occurrence: None)
  Receive Date: 20100611
  Receipt Date: 20100607
  Transmission Date: 20101027
  Serious: Yes (Death, Life-Threatening, Other)
  Sender: FDA-Public Use
  Company Number: US-BAYER-200811527NA

PATIENT
  Age: 25 Year
  Sex: Male
  Weight: 78 kg

DRUGS (12)
  1. CAMPATH [Suspect]
     Indication: BONE MARROW CONDITIONING REGIMEN
     Dosage: 20MG/DAY X5 DAYS
     Route: 042
     Dates: start: 20060724, end: 20060728
  2. CLOFARABINE [Suspect]
     Indication: BONE MARROW CONDITIONING REGIMEN
     Dosage: TOTAL DAILY DOSE: 38 MG  UNIT DOSE: 20 MG/M2
     Route: 042
     Dates: start: 20060724, end: 20060728
  3. MELPHALAN HYDROCHLORIDE [Suspect]
     Indication: BONE MARROW CONDITIONING REGIMEN
     Dosage: TOTAL DAILY DOSE: 190 MG
     Route: 042
     Dates: start: 20060729, end: 20060729
  4. NEUPOGEN [Concomitant]
     Route: 058
     Dates: start: 20060801, end: 20060805
  5. PROGRAF [Concomitant]
     Dates: start: 20060729, end: 20060802
  6. ZYPREXA [Concomitant]
     Dates: start: 20060731, end: 20060803
  7. LEVOPRED [Concomitant]
     Dates: start: 20060801, end: 20060802
  8. VASOPRESSIN [Concomitant]
     Dates: start: 20060801, end: 20060805
  9. DAPTOMYCIN [Concomitant]
     Dates: start: 20060724, end: 20060802
  10. FLAGYL [Concomitant]
     Dates: start: 20060729, end: 20060805
  11. ACYCLOVIR [Concomitant]
     Dates: start: 20060724, end: 20060808
  12. DILAUDID [Concomitant]

REACTIONS (5)
  - ACUTE MYELOID LEUKAEMIA RECURRENT [None]
  - HEPATOSPLENOMEGALY [None]
  - MULTI-ORGAN FAILURE [None]
  - PSEUDOMONAL SEPSIS [None]
  - SEPTIC SHOCK [None]
